FAERS Safety Report 4457306-X (Version None)
Quarter: 2004Q3

REPORT INFORMATION
  Report Type: 
  Country: None (occurrence: None)
  Receive Date: 20040922
  Receipt Date: 20040909
  Transmission Date: 20050211
  Serious: Yes (Hospitalization)
  Sender: FDA-Public Use
  Company Number: 001-0981-M006987

PATIENT
  Age: 67 Year
  Sex: Male
  Weight: 83.2351 kg

DRUGS (11)
  1. ATORVASTATIN A (ATORVASTATIN) [Suspect]
     Indication: CORONARY ARTERY DISEASE
     Dosage: 10 MG, ORAL
     Route: 048
     Dates: start: 19990806, end: 19990930
  2. ASPIRIN [Concomitant]
  3. POTASSIUM CHLORIDE (POTASSIUIM CHLORIDE) [Concomitant]
  4. HYDROCHLOROTHIAZIDE [Concomitant]
  5. ISOSORBIDE MONONITRATE [Concomitant]
  6. IBUPROFEN [Concomitant]
  7. TOLTERODINE TARTRATE [Concomitant]
  8. GINGO BILOBA (GINKO BILOBA) [Concomitant]
  9. VERAPAMIL [Concomitant]
  10. FLYOXYMESTERONE (FLUOXYMESTERONE) [Concomitant]
  11. CELECOXIB (CELECOXIB) [Concomitant]

REACTIONS (9)
  - BACTERIAL INFECTION [None]
  - BILIARY SEPSIS [None]
  - CHOLANGITIS [None]
  - CHOLECYSTITIS [None]
  - CHOLELITHIASIS [None]
  - GALLBLADDER DISORDER [None]
  - ILEUS [None]
  - PANCREATITIS [None]
  - POST PROCEDURAL COMPLICATION [None]
